FAERS Safety Report 7332030-4 (Version None)
Quarter: 2011Q1

REPORT INFORMATION
  Report Type: 
  Country: None (occurrence: None)
  Receive Date: 20110304
  Receipt Date: 20110302
  Transmission Date: 20110831
  Serious: Yes (Other)
  Sender: FDA-Public Use
  Company Number: AU-PFIZER INC-2011045075

PATIENT
  Age: 52 Year
  Sex: Female

DRUGS (5)
  1. PRISTIQ [Suspect]
     Indication: MENOPAUSAL SYMPTOMS
     Dosage: 50 MG, 1X/DAY
     Dates: start: 20110201
  2. ZOLOFT [Suspect]
     Dosage: 100 MG, 1X/DAY
  3. PRISTIQ [Suspect]
     Indication: DEPRESSION
  4. ZOLOFT [Suspect]
     Dosage: 50 MG, UNK
  5. PRISTIQ [Suspect]
     Indication: ANXIETY

REACTIONS (4)
  - LOSS OF CONSCIOUSNESS [None]
  - BLOOD PRESSURE DECREASED [None]
  - HEADACHE [None]
  - DIARRHOEA [None]
